FAERS Safety Report 5660019-X (Version None)
Quarter: 2008Q1

REPORT INFORMATION
  Report Type: 
  Country: None (occurrence: None)
  Receive Date: 20080311
  Receipt Date: 20070824
  Transmission Date: 20080703
  Serious: No
  Sender: FDA-Public Use
  Company Number: US-BAYER-200712746BCC

PATIENT
  Age: 58 Year
  Sex: Female
  Weight: 82 kg

DRUGS (5)
  1. ALEVE [Suspect]
     Indication: ARTHRALGIA
     Dosage: TOTAL DAILY DOSE: 440 MG  UNIT DOSE: 220 MG
     Route: 048
  2. ONE A DAY WOMEN'S 50 PLUS ADVANTAGE [Suspect]
     Indication: ROUTINE HEALTH MAINTENANCE
     Route: 048
     Dates: start: 20070820, end: 20070821
  3. ONE A DAY WOMEN'S 50 PLUS ADVANTAGE [Suspect]
     Route: 048
     Dates: start: 20070801
  4. HYDROCHLOROTHIAZIDE [Concomitant]
  5. CALCIUM SUPPLEMENT [Concomitant]

REACTIONS (3)
  - ABDOMINAL PAIN UPPER [None]
  - DIARRHOEA [None]
  - HEADACHE [None]
